FAERS Safety Report 12358272 (Version 1)
Quarter: 2016Q2

REPORT INFORMATION
  Report Type: Spontaneous
  Country: US (occurrence: None)
  Receive Date: 20160511
  Receipt Date: 20160511
  Transmission Date: 20160815
  Serious: No
  Sender: FDA-Public Use
  Company Number: None

PATIENT
  Age: 73 Year
  Sex: Male
  Weight: 79.38 kg

DRUGS (3)
  1. PROBENECID 500MG. TAB BOUGHT FROM PUBLIX PHARMACY [Suspect]
     Active Substance: PROBENECID
     Indication: GOUT
     Route: 048
     Dates: start: 20160206, end: 20160213
  2. ASPIRIN. [Concomitant]
     Active Substance: ASPIRIN
  3. ALLOPURINOL. [Concomitant]
     Active Substance: ALLOPURINOL

REACTIONS (3)
  - Drug ineffective [None]
  - Adverse drug reaction [None]
  - Product substitution issue [None]

NARRATIVE: CASE EVENT DATE: 20160206
